FAERS Safety Report 14476695 (Version 4)
Quarter: 2018Q2

REPORT INFORMATION
  Report Type: Spontaneous
  Country: DE (occurrence: DE)
  Receive Date: 20180201
  Receipt Date: 20180613
  Transmission Date: 20180711
  Serious: Yes (Other)
  Sender: FDA-Public Use
  Company Number: DE-BAUSCH-BL-2018-001870

PATIENT
  Age: 72 Year
  Sex: Male
  Weight: 77 kg

DRUGS (14)
  1. DACEPTON [Suspect]
     Active Substance: APOMORPHINE HYDROCHLORIDE
     Route: 058
  2. DACEPTON [Suspect]
     Active Substance: APOMORPHINE HYDROCHLORIDE
     Dosage: 88 MG, QD (FROM 7:00 TO 23:00)
     Route: 058
  3. DACEPTON [Suspect]
     Active Substance: APOMORPHINE HYDROCHLORIDE
     Dosage: 88 MG/D , FROM 7:00 TO 23:00 - 89MG/D, FU3: 83MG/D
     Route: 058
  4. ASPIRIN. [Concomitant]
     Active Substance: ASPIRIN
     Indication: PRODUCT USED FOR UNKNOWN INDICATION
     Route: 048
  5. STALEVO [Suspect]
     Active Substance: CARBIDOPA\ENTACAPONE\LEVODOPA
     Indication: PRODUCT USED FOR UNKNOWN INDICATION
     Route: 048
  6. DACEPTON [Suspect]
     Active Substance: APOMORPHINE HYDROCHLORIDE
     Indication: PARKINSON^S DISEASE
     Route: 058
     Dates: start: 20170906
  7. MIRTAZAPINE. [Concomitant]
     Active Substance: MIRTAZAPINE
     Indication: PRODUCT USED FOR UNKNOWN INDICATION
     Route: 048
  8. CIPRALEX [Concomitant]
     Active Substance: ESCITALOPRAM OXALATE
     Indication: PRODUCT USED FOR UNKNOWN INDICATION
     Route: 048
  9. ENALAPRIL [Suspect]
     Active Substance: ENALAPRIL
     Indication: PRODUCT USED FOR UNKNOWN INDICATION
     Route: 048
  10. HTC [Suspect]
     Active Substance: HYDROCHLOROTHIAZIDE
     Indication: PRODUCT USED FOR UNKNOWN INDICATION
     Route: 048
  11. MADOPAR [Suspect]
     Active Substance: BENSERAZIDE HYDROCHLORIDE\LEVODOPA
     Indication: PRODUCT USED FOR UNKNOWN INDICATION
     Route: 048
  12. SIFROL [Concomitant]
     Active Substance: PRAMIPEXOLE
     Indication: PRODUCT USED FOR UNKNOWN INDICATION
     Dosage: SIFROL RET 1,05
     Route: 048
  13. BISOPROLOL [Suspect]
     Active Substance: BISOPROLOL
     Indication: PRODUCT USED FOR UNKNOWN INDICATION
     Route: 048
  14. LEVOCOMP [Concomitant]
     Active Substance: CARBIDOPA\LEVODOPA
     Indication: PRODUCT USED FOR UNKNOWN INDICATION
     Dosage: RET 200 MG
     Route: 048

REACTIONS (7)
  - Sleep disorder [Not Recovered/Not Resolved]
  - Akinesia [Not Recovered/Not Resolved]
  - Nodule [Recovering/Resolving]
  - Hyperkinesia [Unknown]
  - Fatigue [Unknown]
  - Fall [Unknown]
  - Insomnia [Not Recovered/Not Resolved]

NARRATIVE: CASE EVENT DATE: 20170916
